FAERS Safety Report 7348351-5 (Version None)
Quarter: 2011Q1

REPORT INFORMATION
  Report Type: 
  Country: None (occurrence: None)
  Receive Date: 20110311
  Receipt Date: 20110308
  Transmission Date: 20110831
  Serious: Yes (Other)
  Sender: FDA-Public Use
  Company Number: JP-PFIZER INC-2011049904

PATIENT
  Sex: Female

DRUGS (4)
  1. ZOLOFT [Suspect]
     Dosage: UNK
  2. DEPAS [Concomitant]
     Dosage: UNK
  3. SOLANAX [Suspect]
     Dosage: UNK
  4. LENDORMIN [Concomitant]
     Dosage: UNK

REACTIONS (3)
  - MUSCLE RIGIDITY [None]
  - GAIT DISTURBANCE [None]
  - BLEPHAROSPASM [None]
